FAERS Safety Report 13131707 (Version 3)
Quarter: 2017Q2

REPORT INFORMATION
  Report Type: Report from Study
  Country: CA (occurrence: CA)
  Receive Date: 20170119
  Receipt Date: 20170418
  Transmission Date: 20170830
  Serious: Yes (Other)
  Sender: FDA-Public Use
  Company Number: PHHY2016CA159488

PATIENT
  Age: 47 Year
  Sex: Female

DRUGS (1)
  1. GILENYA [Suspect]
     Active Substance: FINGOLIMOD HYDROCHLORIDE
     Indication: MULTIPLE SCLEROSIS
     Dosage: 0.5 DF, QD
     Route: 048
     Dates: start: 20160824

REACTIONS (8)
  - Bundle branch block right [Unknown]
  - Purpura [Unknown]
  - Vitamin D increased [Unknown]
  - Dry skin [Unknown]
  - Retinal haemorrhage [Recovered/Resolved]
  - White blood cell count decreased [Unknown]
  - Weight increased [Unknown]
  - Lymphocyte count decreased [Unknown]

NARRATIVE: CASE EVENT DATE: 20160824
